FAERS Safety Report 20842582 (Version 2)
Quarter: 2023Q2

REPORT INFORMATION
  Report Type: Spontaneous
  Country: None (occurrence: US)
  Receive Date: 20220518
  Receipt Date: 20230614
  Transmission Date: 20230721
  Serious: No
  Sender: FDA-Public Use
  Company Number: ENDG22-01555

PATIENT
  Age: 50 Year
  Sex: Female

DRUGS (6)
  1. BOSENTAN [Suspect]
     Active Substance: BOSENTAN
     Indication: Pulmonary arterial hypertension
     Dosage: 125 MG, BID (ONE TABLET)
     Route: 048
     Dates: start: 20190613, end: 20220427
  2. BOSENTAN [Suspect]
     Active Substance: BOSENTAN
     Dosage: 125 MG, BID
     Route: 048
     Dates: start: 202101
  3. REMODULIN [Suspect]
     Active Substance: TREPROSTINIL
     Indication: Product used for unknown indication
     Dosage: 226 UNKNOWN, UNKNOWN (43 ML/24 HOUR PUMP RATE, USING 8 ML REMODULIN 10 MG/ML EVERY 48 HOURS)
     Route: 065
  4. REMODULIN [Suspect]
     Active Substance: TREPROSTINIL
     Dosage: DECREASED DOSE BY APPROXIMATELY 4 NG/KG/MIN EVERY SEVEN DAYS UNTIL A GOAL DOSE OF 200 NG/KG/MIN
     Route: 065
  5. REMODULIN [Suspect]
     Active Substance: TREPROSTINIL
     Dosage: UNK UNKNOWN, UNKNOWN (INCREASING DOSE WEEKLY AS REQUIRED)
     Route: 065
  6. REMODULIN [Suspect]
     Active Substance: TREPROSTINIL
     Dosage: UNK UNKNOWN, UNKNOWN (LAST TITRATION)
     Route: 065
     Dates: start: 20220401

REACTIONS (1)
  - Dyspnoea [Not Recovered/Not Resolved]

NARRATIVE: CASE EVENT DATE: 20220204
